FAERS Safety Report 11253075 (Version 1)
Quarter: 2015Q3

REPORT INFORMATION
  Report Type: Spontaneous
  Country: US (occurrence: None)
  Receive Date: 20150708
  Receipt Date: 20150708
  Transmission Date: 20151125
  Serious: Yes (Other)
  Sender: FDA-Public Use
  Company Number: None

PATIENT
  Age: 55 Year
  Sex: Female

DRUGS (1)
  1. REBIF REBIDOSE [Suspect]
     Active Substance: INTERFERON BETA-1A
     Indication: MULTIPLE SCLEROSIS
     Route: 058
     Dates: start: 20150529, end: 20150607

REACTIONS (6)
  - Arthralgia [None]
  - Dysarthria [None]
  - Back pain [None]
  - Abasia [None]
  - Gastrointestinal pain [None]
  - Headache [None]

NARRATIVE: CASE EVENT DATE: 20150607
